FAERS Safety Report 22641698 (Version 1)
Quarter: 2023Q2

REPORT INFORMATION
  Report Type: Spontaneous
  Country: US (occurrence: None)
  Receive Date: 20230623
  Receipt Date: 20230623
  Transmission Date: 20230721
  Serious: Yes (Death)
  Sender: FDA-Public Use
  Company Number: None

PATIENT
  Age: 81 Year
  Sex: Female

DRUGS (1)
  1. RINVOQ [Suspect]
     Active Substance: UPADACITINIB
     Dosage: FREQUENCY : EVERY DAY BEFORE NOON;?
     Route: 048
     Dates: start: 20220124

REACTIONS (1)
  - Death [None]

NARRATIVE: CASE EVENT DATE: 20230621
